FAERS Safety Report 8735560 (Version 5)
Quarter: 2012Q4

REPORT INFORMATION
  Report Type: 
  Country: US (occurrence: US)
  Receive Date: 20120822
  Receipt Date: 20121214
  Transmission Date: 20130627
  Serious: Yes (Hospitalization, Other)
  Sender: FDA-Public Use
  Company Number: US-PFIZER INC-2012200782

PATIENT
  Age: 48 Year
  Sex: Female
  Weight: 64.85 kg

DRUGS (14)
  1. SUTENT [Suspect]
     Indication: PANCREATIC NEUROENDOCRINE TUMOUR
     Dosage: 37.5 mg, daily (25mg +12.5mg)
     Dates: start: 20120611
  2. ONDANSETRON [Concomitant]
     Indication: NAUSEA
     Dosage: 4 mg, 1x/day (daily)
  3. ONDANSETRON [Concomitant]
     Dosage: UNK
  4. LISINOPRIL [Concomitant]
     Dosage: 40 mg, 1x/day
  5. METFORMIN [Concomitant]
     Dosage: 500 mg, 2x/day
  6. HYDROCHLOROTHIAZIDE [Concomitant]
     Dosage: 25 mg, 1x/day
  7. OMEPRAZOLE [Concomitant]
     Dosage: 40 mg, 1x/day
  8. SANDOSTATIN [Concomitant]
     Dosage: 2 injections every month
  9. SANDOSTATIN [Concomitant]
     Dosage: UNK
  10. ENSURE [Concomitant]
     Indication: VITAMIN SUPPLEMENTATION
  11. NEXIUM [Concomitant]
     Dosage: UNK
  12. GLIPIZIDE [Concomitant]
     Dosage: UNK
  13. LOMOTIL [Concomitant]
     Indication: DIARRHEA
     Dosage: UNK
  14. LOPERAMIDE HYDROCHLORIDE [Concomitant]
     Dosage: UNK

REACTIONS (19)
  - Cardiac disorder [Unknown]
  - Monoplegia [Unknown]
  - Renal impairment [Unknown]
  - Speech disorder [Unknown]
  - Heart rate increased [Unknown]
  - Diarrhoea [Recovered/Resolved]
  - Dizziness [Unknown]
  - Vomiting [Recovered/Resolved]
  - Nausea [Recovered/Resolved]
  - Dysgeusia [Not Recovered/Not Resolved]
  - Decreased appetite [Recovering/Resolving]
  - Fatigue [Recovering/Resolving]
  - Menstrual disorder [Unknown]
  - Dizziness [Unknown]
  - Blood pressure increased [Unknown]
  - Exertional headache [Unknown]
  - Blood potassium decreased [Unknown]
  - Cardiac valve disease [Unknown]
  - Cough [Unknown]
